FAERS Safety Report 19114224 (Version 1)
Quarter: 2021Q2

REPORT INFORMATION
  Report Type: Spontaneous
  Country: LV (occurrence: LV)
  Receive Date: 20210409
  Receipt Date: 20210409
  Transmission Date: 20210717
  Serious: Yes (Hospitalization)
  Sender: FDA-Public Use
  Company Number: LV-ELI_LILLY_AND_COMPANY-LV202103014412

PATIENT
  Age: 28 Year
  Sex: Female

DRUGS (3)
  1. LANTUS [Concomitant]
     Active Substance: INSULIN GLARGINE
     Indication: GESTATIONAL DIABETES
     Dosage: 18 U
     Dates: start: 20201217, end: 20210304
  2. LYUMJEV KWIKPEN [Suspect]
     Active Substance: INSULIN LISPRO
     Dosage: 5 U, UNKNOWN
     Route: 058
     Dates: start: 20201230, end: 20210304
  3. LYUMJEV KWIKPEN [Suspect]
     Active Substance: INSULIN LISPRO
     Indication: GESTATIONAL DIABETES
     Dosage: 3 U, UNKNOWN
     Route: 058
     Dates: start: 20201221

REACTIONS (4)
  - Maternal exposure during pregnancy [Recovered/Resolved]
  - Oedema peripheral [Recovered/Resolved]
  - Pre-eclampsia [Recovered/Resolved]
  - Hypertension [Recovered/Resolved]

NARRATIVE: CASE EVENT DATE: 20201221
